FAERS Safety Report 9110533 (Version 1)
Quarter: 2013Q1

REPORT INFORMATION
  Report Type: Spontaneous
  Country: US (occurrence: US)
  Receive Date: 20130219
  Receipt Date: 20130219
  Transmission Date: 20140127
  Serious: No
  Sender: FDA-Public Use
  Company Number: US-BRACCO-008480

PATIENT
  Age: 66 Year
  Sex: Male

DRUGS (2)
  1. ISOVUE 370 [Suspect]
     Indication: COMPUTERISED TOMOGRAM
     Route: 042
     Dates: start: 20120817, end: 20120817
  2. ISOVUE 370 [Suspect]
     Indication: RESTRICTIVE PULMONARY DISEASE
     Route: 042
     Dates: start: 20120817, end: 20120817

REACTIONS (2)
  - Throat irritation [Recovered/Resolved]
  - Dysphonia [Recovered/Resolved]
